FAERS Safety Report 4889742-1 (Version None)
Quarter: 2006Q1

REPORT INFORMATION
  Report Type: 
  Country: None (occurrence: None)
  Receive Date: 20060120
  Receipt Date: 20060110
  Transmission Date: 20060701
  Serious: Yes (Hospitalization)
  Sender: FDA-Public Use
  Company Number: 050089

PATIENT
  Age: 61 Year
  Sex: Male
  Weight: 136.0791 kg

DRUGS (13)
  1. GOLYTELY [Suspect]
     Indication: COLONOSCOPY
     Dosage: 4 L, 1X, PO
     Route: 048
     Dates: start: 20050605
  2. ASPIRIN [Concomitant]
  3. TRIAMTERENE [Concomitant]
  4. FELODIPINE [Concomitant]
  5. ATENOLOL [Concomitant]
  6. VERAPAMIL [Concomitant]
  7. LISINOPRIL [Concomitant]
  8. METFORMIN [Concomitant]
  9. ALLOPURINOL [Concomitant]
  10. IBUPROFEN [Concomitant]
  11. GLYBURIDE [Concomitant]
  12. ROSIGLITAZONE [Concomitant]
  13. TRIAMTERENE AND HYDROCHLOROTHIAZIDE [Concomitant]

REACTIONS (3)
  - BLOOD POTASSIUM DECREASED [None]
  - SUPRAVENTRICULAR TACHYCARDIA [None]
  - TACHYCARDIA PAROXYSMAL [None]
